FAERS Safety Report 7127135-7 (Version None)
Quarter: 2010Q4

REPORT INFORMATION
  Report Type: 
  Country: None (occurrence: None)
  Receive Date: 20101129
  Receipt Date: 20100204
  Transmission Date: 20110411
  Serious: No
  Sender: FDA-Public Use
  Company Number: US-PFIZER INC-2010015686

PATIENT

DRUGS (3)
  1. VIAGRA [Suspect]
     Dosage: 50 MG, UNK
  2. CIALIS [Suspect]
     Dosage: UNK
  3. LEVITRA [Suspect]
     Dosage: UNK

REACTIONS (4)
  - ABDOMINAL DISCOMFORT [None]
  - BACK PAIN [None]
  - CYANOPSIA [None]
  - INSOMNIA [None]
